FAERS Safety Report 9233154 (Version 1)
Quarter: 2013Q1

REPORT INFORMATION
  Report Type: Spontaneous
  Country: US (occurrence: None)
  Receive Date: 20121031
  Receipt Date: 20121031
  Transmission Date: 20140127
  Serious: No
  Sender: FDA-Public Use
  Company Number: PHEH2012US014289

PATIENT
  Age: 61 Year
  Sex: Female

DRUGS (10)
  1. GILENYA (FTY) CAPSULE, 0.5MG [Suspect]
     Indication: MULTIPLE SCLEROSIS
     Route: 048
     Dates: start: 20120709
  2. DETROL (TOLTERODIN L-TARTRATE) [Concomitant]
  3. DIOVAN HCT (HYDROCHLOROTHIAZIDE, VALSARTAN) [Concomitant]
  4. FELODIPINE (FELODIPINE) [Concomitant]
  5. COLON HEALTH [Concomitant]
  6. EVENING PRIMROSE OIL (GAMOLENIC ACID) [Concomitant]
  7. VITAMIN D3 (COLECALCIFEROL) [Concomitant]
  8. TOPIRAMATE (TOPIRAMATE) [Concomitant]
  9. FLUTICASONE (FLUTICASONE) [Concomitant]
  10. ASPIRIN (ACETYLSALICYLIC ACID) [Concomitant]

REACTIONS (1)
  - Dyspepsia [None]
